FAERS Safety Report 6135644-2 (Version None)
Quarter: 2009Q1

REPORT INFORMATION
  Report Type: 
  Country: None (occurrence: None)
  Receive Date: 20090327
  Receipt Date: 20081002
  Transmission Date: 20090719
  Serious: No
  Sender: FDA-Public Use
  Company Number: US-ASTRAZENECA-2008UW21560

PATIENT
  Sex: Male

DRUGS (1)
  1. ZESTRIL [Suspect]
     Indication: HYPERTENSION
     Route: 048

REACTIONS (4)
  - ARTHRALGIA [None]
  - BLOOD PRESSURE INCREASED [None]
  - MALAISE [None]
  - MYALGIA [None]
